FAERS Safety Report 5830316-3 (Version None)
Quarter: 2008Q3

REPORT INFORMATION
  Report Type: 
  Country: None (occurrence: None)
  Receive Date: 20080801
  Receipt Date: 20080724
  Transmission Date: 20090109
  Serious: Yes (Hospitalization)
  Sender: FDA-Public Use
  Company Number: DE-ROCHE-537407

PATIENT
  Sex: Female
  Weight: 94 kg

DRUGS (9)
  1. PEGASYS [Suspect]
     Dosage: TEMPORARILY DISCONTINUED.
     Route: 058
     Dates: start: 20070420, end: 20071203
  2. RIBAVIRIN [Suspect]
     Route: 048
     Dates: start: 20070420, end: 20071203
  3. LEVOTHYROXINE SODIUM [Concomitant]
     Dates: start: 20070315
  4. JUTABIS [Concomitant]
     Dates: start: 20070315
  5. DURADIURET [Concomitant]
     Dates: start: 19980101
  6. FURORESE [Concomitant]
     Dates: start: 19980101
  7. SIMVASTATIN [Concomitant]
     Dates: start: 20050101
  8. INSULIN PROTAPHAN HUMAN [Concomitant]
     Dosage: TOTAL DAILY DOSE: 8 IE.
  9. ACTRAPID [Concomitant]
     Dosage: REPORTED AS INSULIN ACTRAPID, TDD REPORTED AS 5-3.4-0 IE.

REACTIONS (1)
  - CEREBROVASCULAR ACCIDENT [None]
